FAERS Safety Report 15850705 (Version 2)
Quarter: 2019Q1

REPORT INFORMATION
  Report Type: Spontaneous
  Country: US (occurrence: US)
  Receive Date: 20190121
  Receipt Date: 20190205
  Transmission Date: 20190417
  Serious: Yes (Life-Threatening, Other)
  Sender: FDA-Public Use
  Company Number: US-ACTELION-A-NJ2019-185048

PATIENT
  Age: 79 Year
  Sex: Male

DRUGS (10)
  1. AMLODIPINE [Concomitant]
     Active Substance: AMLODIPINE BESYLATE
  2. OPSUMIT [Suspect]
     Active Substance: MACITENTAN
     Indication: PULMONARY HYPERTENSION
     Dosage: 10 MG, UNK
     Route: 048
     Dates: start: 20150725, end: 201901
  3. TESTOSTERONE. [Concomitant]
     Active Substance: TESTOSTERONE
  4. WARFARIN [Concomitant]
     Active Substance: WARFARIN
  5. CYTRA-2 [Concomitant]
     Active Substance: CITRIC ACID MONOHYDRATE\TRISODIUM CITRATE DIHYDRATE
  6. METOPROLOL. [Concomitant]
     Active Substance: METOPROLOL
     Dosage: 25 MG, UNK
  7. CITRIC ACID [Concomitant]
     Active Substance: CITRIC ACID MONOHYDRATE
  8. XARELTO [Concomitant]
     Active Substance: RIVAROXABAN
  9. GABAPENTIN. [Concomitant]
     Active Substance: GABAPENTIN
  10. BUMEX [Concomitant]
     Active Substance: BUMETANIDE

REACTIONS (8)
  - Red blood cell count decreased [Not Recovered/Not Resolved]
  - Transfusion [Not Recovered/Not Resolved]
  - Anaemia [Not Recovered/Not Resolved]
  - Haematocrit decreased [Not Recovered/Not Resolved]
  - White blood cell count decreased [Not Recovered/Not Resolved]
  - Haemoglobin decreased [Not Recovered/Not Resolved]
  - Platelet count [Not Recovered/Not Resolved]
  - Epistaxis [Not Recovered/Not Resolved]
